FAERS Safety Report 4494210-5 (Version None)
Quarter: 2004Q4

REPORT INFORMATION
  Report Type: 
  Country: None (occurrence: None)
  Receive Date: 20041105
  Receipt Date: 20041027
  Transmission Date: 20050328
  Serious: Yes (Other)
  Sender: FDA-Public Use
  Company Number: PHEH2004US11572

PATIENT
  Age: 51 Year
  Sex: Female

DRUGS (2)
  1. ZOMETA [Suspect]
     Indication: METASTASES TO BONE
     Dosage: 4 MG MONTHLY
     Route: 042
     Dates: start: 20030401, end: 20040801
  2. CAPECITABINE [Concomitant]

REACTIONS (8)
  - BONE DISORDER [None]
  - HYPOAESTHESIA [None]
  - METASTASES TO BONE [None]
  - OSTEONECROSIS [None]
  - PAIN [None]
  - RADIOTHERAPY [None]
  - TEMPOROMANDIBULAR JOINT SYNDROME [None]
  - TOOTH EXTRACTION [None]
